FAERS Safety Report 12695336 (Version 2)
Quarter: 2017Q2

REPORT INFORMATION
  Report Type: Other
  Country: FR (occurrence: FR)
  Receive Date: 20160829
  Receipt Date: 20170501
  Transmission Date: 20170830
  Serious: Yes (Other)
  Sender: FDA-Public Use
  Company Number: FR-TAKEDA-2016TUS015053

PATIENT
  Age: 38 Year
  Sex: Male

DRUGS (2)
  1. ENTYVIO [Suspect]
     Active Substance: VEDOLIZUMAB
     Indication: CROHN^S DISEASE
     Dosage: 300 MG, UNK
     Route: 042
     Dates: start: 20150610
  2. REMICADE [Suspect]
     Active Substance: INFLIXIMAB
     Indication: CROHN^S DISEASE
     Dosage: 5 MG/KG, Q8WEEKS
     Route: 042
     Dates: start: 201208, end: 20141118

REACTIONS (9)
  - Furuncle [Recovered/Resolved]
  - Angular cheilitis [Recovered/Resolved]
  - Pyoderma [Recovered/Resolved]
  - Staphylococcal skin infection [Unknown]
  - Nasal crusting [Recovered/Resolved]
  - Rash pustular [Recovered/Resolved]
  - Dermatitis psoriasiform [Recovered/Resolved]
  - Rhinitis [Recovered/Resolved]
  - Alopecia areata [Recovered/Resolved]

NARRATIVE: CASE EVENT DATE: 201212
